FAERS Safety Report 5149829-5 (Version None)
Quarter: 2006Q4

REPORT INFORMATION
  Report Type: 
  Country: None (occurrence: None)
  Receive Date: 20061113
  Receipt Date: 20061103
  Transmission Date: 20070319
  Serious: Yes (Hospitalization)
  Sender: FDA-Public Use
  Company Number: IT-SANOFI-SYNTHELABO-A06200600369

PATIENT
  Sex: Female

DRUGS (3)
  1. ANTICOAGULANT NOS [Concomitant]
     Indication: ANTICOAGULANT THERAPY
     Dosage: UNK
     Route: 065
  2. ELOXATIN [Suspect]
     Indication: COLON CANCER STAGE III
     Route: 041
     Dates: start: 20061009, end: 20061009
  3. FLUOROURACIL [Concomitant]
     Indication: COLON CANCER STAGE III
     Route: 041
     Dates: start: 20061009, end: 20061010

REACTIONS (2)
  - APHASIA [None]
  - NERVOUS SYSTEM DISORDER [None]
